FAERS Safety Report 7944694-2 (Version None)
Quarter: 2011Q4

REPORT INFORMATION
  Report Type: 
  Country: None (occurrence: None)
  Receive Date: 20111129
  Receipt Date: 20111125
  Transmission Date: 20120403
  Serious: Yes (Other)
  Sender: FDA-Public Use
  Company Number: BR-JNJFOC-20111111081

PATIENT
  Age: 48 Year
  Sex: Female
  Weight: 50 kg

DRUGS (1)
  1. ACETAMINOPHEN W/ CODEINE [Suspect]
     Indication: ANALGESIC THERAPY
     Route: 048
     Dates: start: 20111124, end: 20111125

REACTIONS (4)
  - TREMOR [None]
  - DRY MOUTH [None]
  - PRURITUS [None]
  - ABDOMINAL PAIN UPPER [None]
